FAERS Safety Report 17121558 (Version 1)
Quarter: 2019Q4

REPORT INFORMATION
  Report Type: Spontaneous
  Country: GB (occurrence: GB)
  Receive Date: 20191206
  Receipt Date: 20191206
  Transmission Date: 20200122
  Serious: Yes (Other)
  Sender: FDA-Public Use
  Company Number: NVSC2019GB054360

PATIENT
  Age: 52 Year
  Sex: Female

DRUGS (1)
  1. TEGRETOL [Suspect]
     Active Substance: CARBAMAZEPINE
     Indication: BIPOLAR DISORDER
     Dosage: 800 MG, QD (200 MG, QD IN THE MORNING AND 600 MG, QD AT THE NIGHT (400 MG AND 200 MG TABLETS TOGETHE
     Route: 065

REACTIONS (2)
  - Blood sodium decreased [Unknown]
  - Loss of consciousness [Unknown]
